FAERS Safety Report 6184857-2 (Version None)
Quarter: 2009Q2

REPORT INFORMATION
  Report Type: 
  Country: None (occurrence: None)
  Receive Date: 20090508
  Receipt Date: 20090430
  Transmission Date: 20091009
  Serious: Yes (Hospitalization, Other)
  Sender: FDA-Public Use
  Company Number: US-AMGEN-QUU331541

PATIENT
  Sex: Female

DRUGS (3)
  1. ENBREL [Suspect]
     Indication: RHEUMATOID ARTHRITIS
     Route: 058
     Dates: start: 20030401
  2. METHOTREXATE [Concomitant]
     Route: 048
  3. METHOTREXATE [Concomitant]

REACTIONS (4)
  - OSTEOARTHRITIS [None]
  - PSORIATIC ARTHROPATHY [None]
  - RHEUMATOID ARTHRITIS [None]
  - SPONDYLOLISTHESIS [None]
